FAERS Safety Report 6864342-2 (Version None)
Quarter: 2010Q3

REPORT INFORMATION
  Report Type: 
  Country: None (occurrence: None)
  Receive Date: 20100721
  Receipt Date: 20080320
  Transmission Date: 20110219
  Serious: No
  Sender: FDA-Public Use
  Company Number: US-PFIZER INC-2008026002

PATIENT
  Sex: Female
  Weight: 64.9 kg

DRUGS (5)
  1. CHANTIX [Suspect]
     Indication: SMOKING CESSATION THERAPY
     Route: 048
     Dates: start: 20071001
  2. LEVOTHYROXINE SODIUM [Concomitant]
  3. WELLBUTRIN XL [Concomitant]
  4. PROZAC [Concomitant]
  5. VITAMINS [Concomitant]

REACTIONS (1)
  - FLATULENCE [None]
